FAERS Safety Report 6746573-5 (Version None)
Quarter: 2010Q2

REPORT INFORMATION
  Report Type: 
  Country: None (occurrence: None)
  Receive Date: 20100528
  Receipt Date: 20090825
  Transmission Date: 20101027
  Serious: No
  Sender: FDA-Public Use
  Company Number: US-ASTRAZENECA-2009SE14410

PATIENT
  Sex: Female

DRUGS (2)
  1. PRILOSEC OTC [Suspect]
     Dosage: 1 TABLET, 1 /DAY
     Route: 048
     Dates: start: 20090824, end: 20090825
  2. HYDROCHLOROTHIAZIDE [Concomitant]
     Dosage: UNKNOWN

REACTIONS (1)
  - ORAL DISCOMFORT [None]
